FAERS Safety Report 6958222-1 (Version None)
Quarter: 2010Q3

REPORT INFORMATION
  Report Type: 
  Country: None (occurrence: None)
  Receive Date: 20100831
  Receipt Date: 20100825
  Transmission Date: 20110219
  Serious: Yes (Other)
  Sender: FDA-Public Use
  Company Number: GB-GENZYME-THYM-1001747

PATIENT
  Sex: Female
  Weight: 65 kg

DRUGS (9)
  1. THYMOGLOBULIN [Suspect]
     Indication: KIDNEY TRANSPLANT REJECTION
     Dosage: 100 MG, UNK
     Route: 042
     Dates: start: 20100724, end: 20100805
  2. COTRIM [Concomitant]
     Indication: PROPHYLAXIS
     Dosage: 480 MG, QD
     Dates: start: 20100526
  3. PREDNISOLONE [Concomitant]
     Indication: KIDNEY TRANSPLANT REJECTION
     Dosage: 20 MG, QD
     Dates: start: 20100527
  4. TACROLIMUS [Concomitant]
     Indication: KIDNEY TRANSPLANT REJECTION
     Dosage: 7 MG, QD
     Dates: start: 20100523
  5. VALGANCICLOVIR [Concomitant]
     Indication: PROPHYLAXIS
     Dosage: 450 MG, QD
     Dates: start: 20100527
  6. OMEPRAZOLE [Concomitant]
     Indication: PROPHYLAXIS
     Dosage: 20 MG, QD
     Dates: start: 20100527
  7. WARFARIN SODIUM [Concomitant]
     Indication: PROPHYLAXIS
     Dosage: UNK
     Dates: start: 20100530
  8. NYSTATIN [Concomitant]
     Indication: PROPHYLAXIS
     Dosage: 4 ML, QD
     Dates: start: 20100723, end: 20100816
  9. METHYLPREDNISOLONE [Concomitant]
     Indication: KIDNEY TRANSPLANT REJECTION
     Dosage: UNK

REACTIONS (8)
  - CANDIDIASIS [None]
  - GROIN PAIN [None]
  - INFECTIOUS MONONUCLEOSIS [None]
  - LYMPH NODE PAIN [None]
  - NAUSEA [None]
  - OROPHARYNGEAL PAIN [None]
  - PYREXIA [None]
  - VOMITING [None]
